FAERS Safety Report 6545218-7 (Version None)
Quarter: 2010Q1

REPORT INFORMATION
  Report Type: 
  Country: None (occurrence: None)
  Receive Date: 20100121
  Receipt Date: 20090626
  Transmission Date: 20100710
  Serious: No
  Sender: FDA-Public Use
  Company Number: US-KINGPHARMUSA00001-K200900767

PATIENT
  Age: 5 Year
  Sex: Male

DRUGS (4)
  1. EPIPEN JR. [Suspect]
     Dosage: 0.15 MG, SINGLE
     Route: 030
     Dates: start: 20090601, end: 20090601
  2. CLARITIN [Concomitant]
  3. SINGULAIR [Concomitant]
  4. NASONEX [Concomitant]

REACTIONS (2)
  - INJECTION SITE INJURY [None]
  - INJECTION SITE PAIN [None]
